FAERS Safety Report 6087092-1 (Version None)
Quarter: 2009Q1

REPORT INFORMATION
  Report Type: 
  Country: None (occurrence: None)
  Receive Date: 20090219
  Receipt Date: 20081223
  Transmission Date: 20090719
  Serious: No
  Sender: FDA-Public Use
  Company Number: WAES 0812USA04646

PATIENT
  Age: 49 Year
  Sex: Female
  Weight: 63.9572 kg

DRUGS (2)
  1. ISENTRESS [Suspect]
     Indication: HIV INFECTION
     Dosage: 1 TAB/BID/PO
     Route: 048
     Dates: start: 20080224
  2. TRUVADA [Concomitant]

REACTIONS (1)
  - WEIGHT INCREASED [None]
